FAERS Safety Report 11755549 (Version 1)
Quarter: 2015Q4

REPORT INFORMATION
  Report Type: Spontaneous
  Country: US (occurrence: US)
  Receive Date: 20151119
  Receipt Date: 20151119
  Transmission Date: 20160304
  Serious: No
  Sender: FDA-Public Use
  Company Number: US-PFIZER INC-2015394307

PATIENT
  Sex: Male

DRUGS (3)
  1. EFFEXOR XR [Suspect]
     Active Substance: VENLAFAXINE HYDROCHLORIDE
     Dosage: UNK
  2. NAPROSYN [Suspect]
     Active Substance: NAPROXEN
     Dosage: UNK
  3. INAPSINE [Suspect]
     Active Substance: DROPERIDOL
     Dosage: UNK

REACTIONS (1)
  - Drug hypersensitivity [Unknown]
